FAERS Safety Report 8128207-0 (Version None)
Quarter: 2012Q1

REPORT INFORMATION
  Report Type: 
  Country: None (occurrence: None)
  Receive Date: 20120210
  Receipt Date: 20120206
  Transmission Date: 20120608
  Serious: Yes (Death, Hospitalization, Other)
  Sender: FDA-Public Use
  Company Number: GB-ALEXION PHARMACEUTICALS INC.-A201200211

PATIENT
  Sex: Female

DRUGS (3)
  1. WARFARIN SODIUM [Concomitant]
  2. SOLIRIS [Suspect]
     Indication: PAROXYSMAL NOCTURNAL HAEMOGLOBINURIA
     Dosage: 900 MG, Q2W
     Route: 042
  3. PROTHROMBINEX [Suspect]
     Indication: GASTROINTESTINAL HAEMORRHAGE

REACTIONS (5)
  - HEMIPARESIS [None]
  - DYSPHAGIA [None]
  - CEREBROVASCULAR ACCIDENT [None]
  - ARTERIAL THROMBOSIS [None]
  - GASTROINTESTINAL HAEMORRHAGE [None]
